FAERS Safety Report 8209270-5 (Version None)
Quarter: 2012Q1

REPORT INFORMATION
  Report Type: 
  Country: None (occurrence: None)
  Receive Date: 20120314
  Receipt Date: 20120305
  Transmission Date: 20120608
  Serious: Yes (Hospitalization)
  Sender: FDA-Public Use
  Company Number: US-BAYER-2011-112555

PATIENT
  Age: 29 Year
  Sex: Female
  Weight: 87.528 kg

DRUGS (16)
  1. PROAIR HFA [Concomitant]
  2. ANTIINFLAMMATORY/ANTIRHEUMATIC NON-STEROIDS [Concomitant]
     Dosage: UNK, PRN
  3. YAZ [Suspect]
     Indication: PREMENSTRUAL SYNDROME
  4. LIPITOR [Concomitant]
  5. PREVACID [Concomitant]
     Indication: GASTROOESOPHAGEAL REFLUX DISEASE
  6. TUSSIONEX [Concomitant]
  7. PSEUDOEPHEDRINE HCL [Concomitant]
  8. NYQUIL [Concomitant]
  9. ASCORBIC ACID [Concomitant]
     Dosage: UNK UNK, PRN
  10. ALPRAZOLAM [Concomitant]
     Indication: ANXIETY
  11. DAYQUIL [DEXTROMET HBR,GUAIF,PARACET,PSEUDOEPH HCL] [Concomitant]
  12. YAZ [Suspect]
     Indication: CONTRACEPTION
     Dosage: UNK
     Dates: start: 20090820, end: 20091102
  13. PRAVASTATIN [Concomitant]
     Indication: BLOOD CHOLESTEROL INCREASED
  14. DIAZEPAM [Concomitant]
  15. YAZ [Suspect]
  16. AZITHROMYCIN [Concomitant]

REACTIONS (2)
  - CEREBROVASCULAR ACCIDENT [None]
  - ANXIETY [None]
